FAERS Safety Report 21125256 (Version 1)
Quarter: 2022Q3

REPORT INFORMATION
  Report Type: Spontaneous
  Country: US (occurrence: None)
  Receive Date: 20220725
  Receipt Date: 20220725
  Transmission Date: 20221027
  Serious: Yes (Hospitalization)
  Sender: FDA-Public Use
  Company Number: None

PATIENT
  Sex: Female

DRUGS (3)
  1. BOTOX [Suspect]
     Active Substance: ONABOTULINUMTOXINA
     Indication: Migraine without aura
     Dosage: INJECT 155 UNITS IN THE MUSCLE IN THE HEAD AND NECK EVERY 3 MONTHS
     Route: 030
     Dates: start: 20180202
  2. INSULIN SYRG MIS [Concomitant]
  3. METFORMIN TAB [Concomitant]

REACTIONS (1)
  - Cerebrovascular accident [None]
